FAERS Safety Report 7299638-6 (Version None)
Quarter: 2011Q1

REPORT INFORMATION
  Report Type: 
  Country: None (occurrence: None)
  Receive Date: 20110209
  Receipt Date: 20110125
  Transmission Date: 20110831
  Serious: Yes (Hospitalization)
  Sender: FDA-Public Use
  Company Number: 1000018620

PATIENT
  Age: 82 Year
  Sex: Female

DRUGS (12)
  1. VAGIFEM (ESTRADIOL) (ESTRADIOL) [Concomitant]
  2. HEMINEVRIN (HEMINEVRIN) (HEMINEVRIN) [Concomitant]
  3. METOPROLOL SUCCINATE [Concomitant]
  4. NITROMEX (GLYERYL TRINITRATE) (GLYCERYL TRINITRATE) [Concomitant]
  5. DUPHALAC (LACTULOSE) (LACTULOSE) [Concomitant]
  6. PREDNISOLONE [Suspect]
     Dosage: 2.5 MG (12.5 MG, 1 IN 1 D), ORAL
     Route: 048
  7. OMEPRAZOLE (OMEPRAZOLE) (OMPERAZOLE) [Concomitant]
  8. PANODIL (PARACETAMOL) (PARACETAMOL) [Concomitant]
  9. FOLACIN (FOLIC ACID) (FOLIC ACID) [Concomitant]
  10. KALCIPOS-D (CALCIUM, VITAMIN D3 (CALCIUM, VITAMIN D3) [Concomitant]
  11. ESCITALOPRAM (ESCITALOPRAM OXALATE) (TABLETS) [Suspect]
     Indication: DEPRESSION
     Dosage: 10 MG (10 MG, 1 IN 1 D), ORAL
     Route: 048
  12. BEHEPAN (CYANOCOBALAMIN) (CYANOCOBALAMIN) [Concomitant]

REACTIONS (5)
  - FATIGUE [None]
  - HAEMORRHOIDS [None]
  - HAEMATOCHEZIA [None]
  - GASTRIC ULCER [None]
  - HAEMOGLOBIN DECREASED [None]
